FAERS Safety Report 9760416 (Version 2)
Quarter: 2014Q1

REPORT INFORMATION
  Report Type: Spontaneous
  Country: US (occurrence: US)
  Receive Date: 20131216
  Receipt Date: 20140204
  Transmission Date: 20141002
  Serious: No
  Sender: FDA-Public Use
  Company Number: US-PFIZER INC-2013358686

PATIENT
  Age: 82 Year
  Sex: Female

DRUGS (8)
  1. XELJANZ [Suspect]
     Indication: RHEUMATOID ARTHRITIS
     Dosage: 5 MG, BID
     Route: 048
     Dates: start: 20130815, end: 20130912
  2. XELJANZ [Interacting]
     Indication: RHEUMATOID ARTHRITIS
  3. XELJANZ [Interacting]
     Indication: RHEUMATOID FACTOR INCREASED
  4. COLCRYS [Interacting]
     Indication: GOUT
     Dosage: 0.6 MG, DAILY
     Route: 048
     Dates: start: 2009, end: 20130912
  5. COLCRYS [Interacting]
     Indication: BLOOD URIC ACID INCREASED
  6. COLCRYS [Interacting]
     Indication: GOUTY TOPHUS
  7. PREDNISONE [Concomitant]
     Indication: RHEUMATOID ARTHRITIS
     Dosage: UNK
     Dates: start: 2013
  8. PREDNISONE [Concomitant]
     Dosage: BY SUMMER, HIGH DOSES BEING RECEIVED
     Dates: start: 2013

REACTIONS (2)
  - Drug interaction [Unknown]
  - Diarrhoea [Recovered/Resolved]
